FAERS Safety Report 21147900 (Version 3)
Quarter: 2022Q3

REPORT INFORMATION
  Report Type: Spontaneous
  Country: ID (occurrence: None)
  Receive Date: 20220729
  Receipt Date: 20220809
  Transmission Date: 20221027
  Serious: Yes (Other)
  Sender: FDA-Public Use
  Company Number: 2022A267320

PATIENT
  Age: 48 Year
  Sex: Male

DRUGS (1)
  1. GEFITINIB [Suspect]
     Active Substance: GEFITINIB
     Route: 048

REACTIONS (4)
  - Pulmonary mass [Unknown]
  - EGFR gene mutation [Unknown]
  - Lymphadenopathy mediastinal [Unknown]
  - Aortic disorder [Unknown]
